FAERS Safety Report 8949766 (Version 1)
Quarter: 2012Q4

REPORT INFORMATION
  Report Type: 
  Country: MX (occurrence: MX)
  Receive Date: 20121206
  Receipt Date: 20121206
  Transmission Date: 20130627
  Serious: Yes (Death)
  Sender: FDA-Public Use
  Company Number: PHHY2012MX112116

PATIENT
  Age: 81 None
  Sex: Male

DRUGS (1)
  1. DIOVAN [Suspect]
     Indication: HYPERTENSION
     Dosage: 1 DF (80mg), daily
     Route: 048
     Dates: start: 2007

REACTIONS (5)
  - Prostatomegaly [Fatal]
  - Hernia [Fatal]
  - Abdominal pain upper [Fatal]
  - Vomiting [Fatal]
  - Eating disorder [Fatal]
